FAERS Safety Report 13510221 (Version 2)
Quarter: 2017Q2

REPORT INFORMATION
  Report Type: Spontaneous
  Country: FR (occurrence: FR)
  Receive Date: 20170503
  Receipt Date: 20170612
  Transmission Date: 20170830
  Serious: Yes (Death, Hospitalization, Other)
  Sender: FDA-Public Use
  Company Number: FR-VALIDUS PHARMACEUTICALS LLC-FR-2017VAL000681

PATIENT
  Age: 62 Year
  Sex: Female

DRUGS (6)
  1. PIPERACILLIN/TAZOBACTAM [Suspect]
     Active Substance: PIPERACILLIN SODIUM\TAZOBACTAM SODIUM
     Indication: PRODUCT USED FOR UNKNOWN INDICATION
     Dosage: 4 GRAM(S);3 TIMES A DAY
     Route: 042
     Dates: start: 2013
  2. SULFAMETHOXAZOLE W/TRIMETHOPRIM [Concomitant]
     Active Substance: SULFAMETHOXAZOLE\TRIMETHOPRIM
     Indication: PRODUCT USED FOR UNKNOWN INDICATION
     Dosage: UNK
     Dates: start: 20130710
  3. SPIRAMYCIN [Suspect]
     Active Substance: SPIRAMYCIN
     Indication: PNEUMONIA
     Dosage: UNK, TWICE A DAY
     Route: 065
     Dates: start: 20130629
  4. CEFOTAXIME SODIUM [Suspect]
     Active Substance: CEFOTAXIME SODIUM
     Indication: PNEUMONIA
     Dosage: 1 GRAM(S);3 TIMES A DAY
     Route: 065
     Dates: start: 20130629
  5. CIPROFLOXACIN. [Suspect]
     Active Substance: CIPROFLOXACIN
     Indication: PNEUMONIA
     Dosage: 400 MILLIGRAM(S);TWICE A DAY
     Route: 042
     Dates: start: 2013
  6. CIPROFLOXACIN. [Suspect]
     Active Substance: CIPROFLOXACIN
     Dosage: 400 MG, BID
     Route: 065
     Dates: start: 20130710

REACTIONS (16)
  - Hyperlactacidaemia [Fatal]
  - Intestinal ischaemia [Fatal]
  - Tachycardia [Fatal]
  - Abdominal rigidity [Unknown]
  - Hypothermia [Fatal]
  - Leukocytosis [Fatal]
  - Condition aggravated [Fatal]
  - Large intestine perforation [Unknown]
  - Cyanosis [Fatal]
  - Hypoperfusion [Fatal]
  - Clostridium bacteraemia [Fatal]
  - Abdominal distension [Unknown]
  - Clostridial sepsis [Fatal]
  - Skin discolouration [Fatal]
  - Hypotension [Fatal]
  - Tachypnoea [Unknown]

NARRATIVE: CASE EVENT DATE: 2013
